FAERS Safety Report 5305551-3 (Version None)
Quarter: 2007Q2

REPORT INFORMATION
  Report Type: 
  Country: None (occurrence: None)
  Receive Date: 20070424
  Receipt Date: 20070418
  Transmission Date: 20071010
  Serious: Yes (Death, Hospitalization, Other)
  Sender: FDA-Public Use
  Company Number: US-BRISTOL-MYERS SQUIBB COMPANY-13744255

PATIENT
  Age: 55 Year
  Sex: Male

DRUGS (6)
  1. BMS582664 [Suspect]
     Indication: COLORECTAL CANCER METASTATIC
     Route: 048
     Dates: start: 20070408, end: 20070408
  2. ERBITUX [Suspect]
     Indication: COLORECTAL CANCER METASTATIC
     Route: 042
     Dates: start: 20070402, end: 20070402
  3. OXYCODONE HCL [Concomitant]
     Dates: start: 20060101
  4. MORPHINE SULFATE [Concomitant]
     Dates: start: 20060101
  5. DECADRON [Concomitant]
     Dates: start: 20070301
  6. ALBUTEROL [Concomitant]
     Dates: start: 20070301

REACTIONS (5)
  - DEATH [None]
  - GASTROINTESTINAL NECROSIS [None]
  - MALIGNANT NEOPLASM PROGRESSION [None]
  - PERITONITIS [None]
  - RECTAL PERFORATION [None]
